FAERS Safety Report 9899543 (Version 5)
Quarter: 2019Q4

REPORT INFORMATION
  Report Type: Spontaneous
  Country: US (occurrence: US)
  Receive Date: 20140214
  Receipt Date: 20191219
  Transmission Date: 20200122
  Serious: Yes (Hospitalization)
  Sender: FDA-Public Use
  Company Number: US-UCBSA-097897

PATIENT
  Age: 35 Year
  Sex: Female
  Weight: 71.2 kg

DRUGS (10)
  1. VALTREX [Concomitant]
     Active Substance: VALACYCLOVIR HYDROCHLORIDE
     Indication: ORAL HERPES
     Dosage: UNK UNK, 2X/DAY (BID)
     Dates: end: 20140324
  2. CIMZIA [Suspect]
     Active Substance: CERTOLIZUMAB PEGOL
     Indication: CROHN^S DISEASE
     Dosage: EXPIRY DATE: APR-2016 TAKING FOR PPROX 4 YEARS
     Route: 058
     Dates: start: 20090307, end: 2014
  3. PHENERGAN [Concomitant]
     Active Substance: PROMETHAZINE HYDROCHLORIDE
     Indication: NAUSEA
     Dosage: DOSE: 25 MG PR EVERY 6 HOURS
     Route: 048
  4. LOMOTIL [Concomitant]
     Active Substance: ATROPINE SULFATE\DIPHENOXYLATE HYDROCHLORIDE
     Indication: DIARRHOEA
     Dosage: UPTO 8 TIMES PER DAY
     Route: 048
  5. PHENERGAN [Concomitant]
     Active Substance: PROMETHAZINE HYDROCHLORIDE
     Dosage: 25 MG, WEEKLY (QW)
     Route: 042
     Dates: start: 201301
  6. NORCO [Concomitant]
     Active Substance: ACETAMINOPHEN\HYDROCODONE BITARTRATE
     Indication: PAIN
     Dosage: TAKING FROM MANY YEARS, UPTO 6 TIMES EACH DAY
     Route: 048
  7. XANAX [Concomitant]
     Active Substance: ALPRAZOLAM
     Indication: ANXIETY
     Dosage: 1 G, 3X/DAY (TID)
     Route: 048
  8. LASIX [Concomitant]
     Active Substance: FUROSEMIDE
     Indication: SWELLING
     Dosage: 40 MG, ONCE DAILY (QD)
     Route: 048
  9. NORMAL SALINE [Concomitant]
     Active Substance: SODIUM CHLORIDE
     Dosage: DOSE: 500 ML/HR; WITH INJECTION, ONCE A WEEK WITH PHENERGAN AND PROTONIX
     Route: 042
     Dates: start: 201301
  10. PROTONIX [Concomitant]
     Active Substance: PANTOPRAZOLE SODIUM
     Indication: NAUSEA
     Dosage: ONCE A WEEK WITH PHENERGAN
     Route: 042
     Dates: start: 201301

REACTIONS (15)
  - Dizziness [Not Recovered/Not Resolved]
  - Vomiting [Not Recovered/Not Resolved]
  - Headache [Not Recovered/Not Resolved]
  - Drug ineffective [Recovered/Resolved]
  - Nausea [Not Recovered/Not Resolved]
  - Fatigue [Not Recovered/Not Resolved]
  - Epistaxis [Not Recovered/Not Resolved]
  - Inappropriate schedule of product administration [Recovered/Resolved]
  - Crohn^s disease [Not Recovered/Not Resolved]
  - Hypoaesthesia [Recovering/Resolving]
  - Vision blurred [Not Recovered/Not Resolved]
  - Nasal disorder [Not Recovered/Not Resolved]
  - Bone pain [Not Recovered/Not Resolved]
  - Rectal haemorrhage [Recovering/Resolving]
  - Paraesthesia [Recovering/Resolving]

NARRATIVE: CASE EVENT DATE: 20130911
